FAERS Safety Report 7781001-2 (Version None)
Quarter: 2011Q3

REPORT INFORMATION
  Report Type: 
  Country: None (occurrence: None)
  Receive Date: 20110927
  Receipt Date: 20110913
  Transmission Date: 20111222
  Serious: Yes (Other)
  Sender: FDA-Public Use
  Company Number: PHHY2011BR82428

PATIENT
  Age: 63 Year
  Sex: Male

DRUGS (5)
  1. HYDROCHLOROTHIAZIDE [Suspect]
     Dosage: 25 MG, UNK
  2. RASILEZ [Concomitant]
     Dosage: 300 MG/DAY
  3. DIOVAN [Suspect]
     Dosage: 320 MG, UNK
  4. ROSUVASTATIN [Suspect]
     Dosage: 10 MG, UNK
  5. DEXAMETHASONE [Concomitant]
     Dosage: 40 MG, 2 TIMES/MONTH

REACTIONS (9)
  - OEDEMA [None]
  - PROTEINURIA [None]
  - GLOMERULOSCLEROSIS [None]
  - HYPERCHOLESTEROLAEMIA [None]
  - GLOMERULONEPHROPATHY [None]
  - OEDEMA PERIPHERAL [None]
  - MONOCLONAL GAMMOPATHY [None]
  - RENAL IMPAIRMENT [None]
  - BLOOD ALBUMIN DECREASED [None]
